FAERS Safety Report 6515869-4 (Version None)
Quarter: 2009Q4

REPORT INFORMATION
  Report Type: 
  Country: None (occurrence: None)
  Receive Date: 20091223
  Receipt Date: 20091216
  Transmission Date: 20100525
  Serious: Yes (Other)
  Sender: FDA-Public Use
  Company Number: US-JNJFOC-20091205073

PATIENT
  Sex: Female
  Weight: 54.43 kg

DRUGS (3)
  1. REMICADE [Suspect]
     Indication: RHEUMATOID ARTHRITIS
     Route: 042
  2. FOSAMAX [Concomitant]
     Indication: OSTEOPOROSIS
  3. ISTALOL [Concomitant]
     Indication: GLAUCOMA
     Dosage: 1 YEAR

REACTIONS (3)
  - DRUG INEFFECTIVE [None]
  - INTRACRANIAL ANEURYSM [None]
  - RHEUMATOID ARTHRITIS [None]
